FAERS Safety Report 8565808-X (Version None)
Quarter: 2012Q3

REPORT INFORMATION
  Report Type: 
  Country: None (occurrence: None)
  Receive Date: 20120803
  Receipt Date: 20120730
  Transmission Date: 20120928
  Serious: Yes (Hospitalization, Other)
  Sender: FDA-Public Use
  Company Number: US-BAXTER-2012BAX012574

PATIENT
  Sex: Male

DRUGS (2)
  1. CEFTAZIDIME [Suspect]
     Indication: PERITONITIS
     Route: 065
  2. DIANEAL [Suspect]
     Indication: PERITONEAL DIALYSIS
     Route: 033

REACTIONS (3)
  - PERITONITIS BACTERIAL [None]
  - FUNCTIONAL GASTROINTESTINAL DISORDER [None]
  - GALLBLADDER DISORDER [None]
